FAERS Safety Report 25126558 (Version 1)
Quarter: 2025Q1

REPORT INFORMATION
  Report Type: Spontaneous
  Country: BR (occurrence: BR)
  Receive Date: 20250327
  Receipt Date: 20250327
  Transmission Date: 20250408
  Serious: Yes (Other)
  Sender: SANDOZ
  Company Number: BR-002147023-NVSC2025BR049378

PATIENT
  Age: 86 Year
  Sex: Female

DRUGS (1)
  1. AZOPT [Suspect]
     Active Substance: BRINZOLAMIDE
     Indication: Hypertension
     Route: 065

REACTIONS (5)
  - Cataract [Unknown]
  - Influenza [Unknown]
  - Hypertension [Unknown]
  - Visual impairment [Unknown]
  - Fatigue [Unknown]
